FAERS Safety Report 16808433 (Version 1)
Quarter: 2019Q3

REPORT INFORMATION
  Report Type: Spontaneous
  Country: JP (occurrence: JP)
  Receive Date: 20190916
  Receipt Date: 20190916
  Transmission Date: 20191005
  Serious: Yes (Hospitalization, Disabling, Congenital Anomaly, Other)
  Sender: FDA-Public Use
  Company Number: JP-CELLTRION INC.-2019JP024721

PATIENT

DRUGS (7)
  1. ROZEUS INTRAVENOUS SOLUTION 40MG [Suspect]
     Active Substance: VINORELBINE TARTRATE
     Route: 064
  2. TAMOXIFEN [Suspect]
     Active Substance: TAMOXIFEN
     Route: 064
  3. EPIRUBICIN 50MG/25ML [NK] (EPIRUBICIN HYDROCHLORIDE) ? [Suspect]
     Active Substance: EPIRUBICIN
     Route: 064
  4. CYCLOPHOSPHAMIDE HYDRATE [Suspect]
     Active Substance: CYCLOPHOSPHAMIDE
     Route: 064
  5. TRASTUZUMAB BS FOR I.V. INFUSION [NK] [Suspect]
     Active Substance: TRASTUZUMAB
     Route: 064
  6. PACLITAXEL INJ. 100MG/16.7ML [NK] [Suspect]
     Active Substance: PACLITAXEL
     Route: 064
  7. GEMCITABINE FOR I.V. INFUSION 1G [NK] [Suspect]
     Active Substance: GEMCITABINE
     Route: 064

REACTIONS (5)
  - Anal atresia [Unknown]
  - Use of accessory respiratory muscles [Recovering/Resolving]
  - Respiratory disorder neonatal [Recovering/Resolving]
  - Congenital muscle absence [Unknown]
  - Cryptorchism [Unknown]
